FAERS Safety Report 7080525-3 (Version None)
Quarter: 2010Q4

REPORT INFORMATION
  Report Type: 
  Country: None (occurrence: None)
  Receive Date: 20101103
  Receipt Date: 20101027
  Transmission Date: 20110411
  Serious: Yes (Life-Threatening, Other)
  Sender: FDA-Public Use
  Company Number: ES-CELGENEUS-144-21880-10102109

PATIENT
  Sex: Male
  Weight: 72 kg

DRUGS (5)
  1. REVLIMID [Suspect]
     Indication: MULTIPLE MYELOMA
     Route: 048
     Dates: start: 20090219
  2. REVLIMID [Suspect]
     Route: 048
     Dates: end: 20100919
  3. DEXAMETHASONE [Concomitant]
     Indication: MULTIPLE MYELOMA
     Route: 065
     Dates: start: 20090201, end: 20100701
  4. ARANESP [Concomitant]
     Route: 065
  5. ZOMETA [Concomitant]
     Route: 051

REACTIONS (3)
  - HYPOTHYROIDISM [None]
  - LEUKOPENIA [None]
  - RENAL FAILURE [None]
